FAERS Safety Report 7349943-X (Version None)
Quarter: 2011Q1

REPORT INFORMATION
  Report Type: 
  Country: None (occurrence: None)
  Receive Date: 20110314
  Receipt Date: 20101012
  Transmission Date: 20110831
  Serious: Yes (Disabling, Other)
  Sender: FDA-Public Use
  Company Number: GB-TEVA-229390ISR

PATIENT
  Age: 38 Year
  Sex: Male

DRUGS (3)
  1. AZITHROMYCIN [Suspect]
     Indication: BRONCHIECTASIS
  2. IMMUNOGLOBULIN HUMAN NORMAL [Suspect]
     Indication: PRIMARY IMMUNODEFICIENCY SYNDROME
     Route: 042
     Dates: start: 20090528, end: 20090528
  3. SUBGUAM [Suspect]
     Indication: IMMUNOGLOBULINS NORMAL
     Dates: start: 20100120

REACTIONS (3)
  - ALOPECIA [None]
  - SKIN EXFOLIATION [None]
  - SKIN SWELLING [None]
